FAERS Safety Report 7545134-8 (Version None)
Quarter: 2011Q2

REPORT INFORMATION
  Report Type: 
  Country: None (occurrence: None)
  Receive Date: 20110610
  Receipt Date: 20110610
  Transmission Date: 20111010
  Serious: Yes (Life-Threatening)
  Sender: FDA-Public Use
  Company Number: None

PATIENT
  Age: 66 Year
  Sex: Female
  Weight: 92.9874 kg

DRUGS (1)
  1. NAMBUTONE 750MG TEVA [Suspect]
     Indication: ANTIINFLAMMATORY THERAPY
     Dosage: 1 TAB BID  5 DOSES
     Dates: start: 20110509, end: 20110511

REACTIONS (11)
  - PYREXIA [None]
  - CONSTIPATION [None]
  - ARTHROPATHY [None]
  - HEADACHE [None]
  - RENAL PAIN [None]
  - NAUSEA [None]
  - DIARRHOEA [None]
  - NEUROPATHY PERIPHERAL [None]
  - LOSS OF CONSCIOUSNESS [None]
  - RECTAL HAEMORRHAGE [None]
  - WEIGHT DECREASED [None]
